FAERS Safety Report 23410043 (Version 1)
Quarter: 2024Q1

REPORT INFORMATION
  Report Type: Report from Study
  Country: US (occurrence: None)
  Receive Date: 20240117
  Receipt Date: 20240117
  Transmission Date: 20240410
  Serious: Yes (Hospitalization)
  Sender: FDA-Public Use
  Company Number: 2024A008290

PATIENT
  Sex: Male

DRUGS (2)
  1. LYNPARZA [Suspect]
     Active Substance: OLAPARIB
     Route: 048
     Dates: start: 20231206
  2. LYNPARZA [Suspect]
     Active Substance: OLAPARIB
     Route: 048
     Dates: start: 20231206

REACTIONS (5)
  - Vomiting [Unknown]
  - Diarrhoea [Unknown]
  - Full blood count decreased [Unknown]
  - Gait disturbance [Unknown]
  - Asthenia [Recovering/Resolving]
